FAERS Safety Report 9319247 (Version 1)
Quarter: 2013Q2

REPORT INFORMATION
  Report Type: Spontaneous
  Country: US (occurrence: US)
  Receive Date: 20130530
  Receipt Date: 20130530
  Transmission Date: 20140414
  Serious: Yes (Disabling)
  Sender: FDA-Public Use
  Company Number: US-ROCHE-1229607

PATIENT
  Sex: Female

DRUGS (2)
  1. AVASTIN [Suspect]
     Indication: COLORECTAL CANCER METASTATIC
     Route: 065
  2. FEMARA [Concomitant]
     Indication: BREAST CANCER METASTATIC

REACTIONS (2)
  - Fluid retention [Not Recovered/Not Resolved]
  - Fatigue [Unknown]
